FAERS Safety Report 6863951-4 (Version None)
Quarter: 2010Q3

REPORT INFORMATION
  Report Type: 
  Country: None (occurrence: None)
  Receive Date: 20100721
  Receipt Date: 20080505
  Transmission Date: 20110219
  Serious: No
  Sender: FDA-Public Use
  Company Number: US-PFIZER INC-2008022102

PATIENT
  Sex: Male
  Weight: 83.9 kg

DRUGS (6)
  1. CHANTIX [Suspect]
     Indication: SMOKING CESSATION THERAPY
     Dosage: FREQUENCY: BID
     Route: 048
     Dates: start: 20080101, end: 20080201
  2. ZETIA [Concomitant]
     Indication: TYPE 2 DIABETES MELLITUS
  3. ACTOS [Concomitant]
     Indication: TYPE 2 DIABETES MELLITUS
  4. LEXAPRO [Concomitant]
  5. HYDROCODONE [Concomitant]
     Indication: BACK PAIN
  6. DEMADEX [Concomitant]

REACTIONS (5)
  - BALANCE DISORDER [None]
  - DIZZINESS [None]
  - DRUG DOSE OMISSION [None]
  - HEADACHE [None]
  - INCORRECT DOSE ADMINISTERED [None]
